FAERS Safety Report 4393119-5 (Version None)
Quarter: 2004Q3

REPORT INFORMATION
  Report Type: 
  Country: None (occurrence: None)
  Receive Date: 20040706
  Receipt Date: 20040625
  Transmission Date: 20050211
  Serious: Yes (Other)
  Sender: FDA-Public Use
  Company Number: 200411442DE

PATIENT
  Age: 36 Year
  Sex: Female

DRUGS (3)
  1. ENOXAPARIN SODIUM [Suspect]
     Route: 058
     Dates: start: 20031119, end: 20040408
  2. PRESINOL MITE [Concomitant]
     Indication: HYPERTENSION
     Route: 048
     Dates: start: 20031228, end: 20040401
  3. PREDNISOLONE [Concomitant]
     Indication: SEASONAL ALLERGY
     Route: 048
     Dates: start: 20040402, end: 20040409

REACTIONS (2)
  - DRUG EXPOSURE DURING PREGNANCY [None]
  - HELLP SYNDROME [None]
